FAERS Safety Report 20988599 (Version 1)
Quarter: 2022Q2

REPORT INFORMATION
  Report Type: Spontaneous
  Country: CN (occurrence: CN)
  Receive Date: 20220621
  Receipt Date: 20220621
  Transmission Date: 20220721
  Serious: Yes (Other)
  Sender: FDA-Public Use
  Company Number: CN-SCALL-2022-CN-000180

PATIENT
  Age: 60 Year
  Sex: Female
  Weight: 59 kg

DRUGS (4)
  1. RABEPRAZOLE SODIUM [Suspect]
     Active Substance: RABEPRAZOLE SODIUM
     Indication: Helicobacter infection
     Dosage: 40 MG (FREQUENCY UNKNOWN)
     Route: 048
     Dates: start: 20220518, end: 20220524
  2. BISMUTH SUBCITRATE [Concomitant]
     Active Substance: BISMUTH SUBCITRATE
     Route: 048
     Dates: start: 20220518
  3. AMOXICILLIN [Concomitant]
     Active Substance: AMOXICILLIN
     Dosage: UNKNOWN
     Route: 048
     Dates: start: 20220518
  4. FURAZOLIDONE [Concomitant]
     Active Substance: FURAZOLIDONE
     Dosage: UNKNOWN
     Route: 048
     Dates: start: 20220518

REACTIONS (2)
  - Hepatic function abnormal [Recovered/Resolved]
  - Blood bilirubin increased [Recovered/Resolved]

NARRATIVE: CASE EVENT DATE: 20220524
